FAERS Safety Report 12080030 (Version 3)
Quarter: 2016Q1

REPORT INFORMATION
  Report Type: Spontaneous
  Country: AR (occurrence: AR)
  Receive Date: 20160216
  Receipt Date: 20160229
  Transmission Date: 20160526
  Serious: Yes (Hospitalization, Other)
  Sender: FDA-Public Use
  Company Number: PHHY2016AR019885

PATIENT
  Age: 74 Year
  Sex: Female

DRUGS (3)
  1. SEEBRI BREEZHALER [Suspect]
     Active Substance: GLYCOPYRROLATE
     Dosage: UNK
     Route: 065
     Dates: start: 20160222
  2. T4 [Concomitant]
     Active Substance: LEVOTHYROXINE
     Indication: HYPOTHYROIDISM
     Route: 065
  3. SEEBRI BREEZHALER [Suspect]
     Active Substance: GLYCOPYRROLATE
     Indication: CHRONIC OBSTRUCTIVE PULMONARY DISEASE
     Dosage: 1 DF, QD
     Route: 065
     Dates: end: 20160215

REACTIONS (6)
  - Memory impairment [Recovering/Resolving]
  - Paralysis [Recovering/Resolving]
  - Mobility decreased [Recovered/Resolved]
  - Peripheral swelling [Recovered/Resolved]
  - Thrombosis [Recovering/Resolving]
  - Agitation [Recovering/Resolving]

NARRATIVE: CASE EVENT DATE: 20160120
